FAERS Safety Report 18867142 (Version 1)
Quarter: 2021Q1

REPORT INFORMATION
  Report Type: Spontaneous
  Country: CH (occurrence: CH)
  Receive Date: 20210209
  Receipt Date: 20210209
  Transmission Date: 20210420
  Serious: Yes (Hospitalization)
  Sender: FDA-Public Use
  Company Number: NVSC2021CH024592

PATIENT
  Age: 93 Year
  Sex: Male

DRUGS (9)
  1. METO ZEROK [Suspect]
     Active Substance: METOPROLOL SUCCINATE
     Indication: PRODUCT USED FOR UNKNOWN INDICATION
     Dosage: 12.5 MG, QD
     Route: 048
     Dates: end: 20201225
  2. ASPIRIN CARDIO [Suspect]
     Active Substance: ASPIRIN
     Indication: PRODUCT USED FOR UNKNOWN INDICATION
     Dosage: 100 MG, QD
     Route: 048
     Dates: end: 20201226
  3. MOVICOL [Concomitant]
     Active Substance: POLYETHYLENE GLYCOL 3350\POTASSIUM CHLORIDE\SODIUM BICARBONATE\SODIUM CHLORIDE
     Indication: PRODUCT USED FOR UNKNOWN INDICATION
     Dosage: 1 DF, QD ((PAUSED SINCE 26 DEC 2020))
     Route: 048
     Dates: end: 20201226
  4. LAXOBERON [Concomitant]
     Active Substance: SODIUM PICOSULFATE
     Indication: PRODUCT USED FOR UNKNOWN INDICATION
     Dosage: UNK UNK, PRN
     Route: 048
  5. VESICARE [Suspect]
     Active Substance: SOLIFENACIN SUCCINATE
     Indication: PRODUCT USED FOR UNKNOWN INDICATION
     Dosage: 5 MG, Q12H
     Route: 048
     Dates: end: 20201225
  6. EXCIPIAL KERASAL [Suspect]
     Active Substance: SALICYLIC ACID\UREA
     Dosage: 1 UNK (IN TOTAL)
     Route: 061
     Dates: start: 20201229, end: 20201229
  7. EXCIPIAL KERASAL [Suspect]
     Active Substance: SALICYLIC ACID\UREA
     Indication: ACTINIC KERATOSIS
     Dosage: 1 DF
     Route: 061
     Dates: end: 20201226
  8. TOBRADEX [Suspect]
     Active Substance: DEXAMETHASONE\TOBRAMYCIN
     Indication: CATARACT OPERATION
     Dosage: 1 DF
     Route: 047
     Dates: start: 20201112, end: 20201225
  9. NEVANAC [Suspect]
     Active Substance: NEPAFENAC
     Indication: CATARACT OPERATION
     Dosage: 1 DF
     Route: 047
     Dates: start: 20201112, end: 20201225

REACTIONS (1)
  - Rash maculo-papular [Recovering/Resolving]

NARRATIVE: CASE EVENT DATE: 20201225
